FAERS Safety Report 11136988 (Version 1)
Quarter: 2015Q2

REPORT INFORMATION
  Report Type: Spontaneous
  Country: US (occurrence: US)
  Receive Date: 20150526
  Receipt Date: 20150526
  Transmission Date: 20150821
  Serious: No
  Sender: FDA-Public Use
  Company Number: US-MALLINCKRODT-T201501563

PATIENT
  Age: 72 Year
  Sex: Female
  Weight: 82 kg

DRUGS (6)
  1. H.P. ACTHAR [Suspect]
     Active Substance: CORTICOTROPIN
     Indication: MULTIPLE SCLEROSIS
     Dosage: 1 ML, ONCE DAILY FOR 5 DAYS
     Route: 058
     Dates: start: 201501
  2. IBUPROFEN. [Concomitant]
     Active Substance: IBUPROFEN
     Dosage: 3 TABLETS
  3. GABAPENTIN. [Concomitant]
     Active Substance: GABAPENTIN
     Dosage: 800 MG EVERY 6 HOURS
  4. BACLOFEN. [Concomitant]
     Active Substance: BACLOFEN
     Dosage: 2- 20 MG TABLETS EVERY 6 HOURS
  5. ATIVAN [Concomitant]
     Active Substance: LORAZEPAM
     Dosage: 1 TABLET, ONE A DAY
  6. PAXIL [Concomitant]
     Active Substance: PAROXETINE HYDROCHLORIDE
     Dosage: AT BEDTIME

REACTIONS (5)
  - Hypertension [Recovering/Resolving]
  - Muscle spasms [Recovering/Resolving]
  - Disorientation [Recovering/Resolving]
  - Dizziness [Recovering/Resolving]
  - Anxiety [Recovering/Resolving]

NARRATIVE: CASE EVENT DATE: 20150302
